FAERS Safety Report 6566780-4 (Version None)
Quarter: 2010Q1

REPORT INFORMATION
  Report Type: 
  Country: None (occurrence: None)
  Receive Date: 20100202
  Receipt Date: 20100122
  Transmission Date: 20100710
  Serious: Yes (Hospitalization)
  Sender: FDA-Public Use
  Company Number: US-ELI_LILLY_AND_COMPANY-US201001004753

PATIENT
  Sex: Female
  Weight: 85.714 kg

DRUGS (3)
  1. PEMETREXED [Suspect]
     Indication: NON-SMALL CELL LUNG CANCER
     Dosage: 890 MG, OTHER
     Route: 042
     Dates: start: 20091203
  2. CARBOPLATIN [Suspect]
     Indication: NON-SMALL CELL LUNG CANCER
     Dosage: 882 MG, OTHER
     Route: 042
     Dates: start: 20091203
  3. AMITIZA [Concomitant]
     Dosage: 8 MG, 2/D
     Route: 048
     Dates: start: 20091117

REACTIONS (1)
  - DEHYDRATION [None]
